FAERS Safety Report 15620496 (Version 3)
Quarter: 2019Q1

REPORT INFORMATION
  Report Type: Spontaneous
  Country: UG (occurrence: UG)
  Receive Date: 20181115
  Receipt Date: 20190214
  Transmission Date: 20190417
  Serious: Yes (Congenital Anomaly, Other)
  Sender: FDA-Public Use
  Company Number: UG-AUROBINDO-AUR-APL-2018-054491

PATIENT

DRUGS (6)
  1. LAMIVUDINE. [Suspect]
     Active Substance: LAMIVUDINE
     Indication: HIV INFECTION
     Dosage: 300 MILLIGRAM, DAILY
     Route: 064
     Dates: start: 20180301
  2. EFAVIRENZ. [Suspect]
     Active Substance: EFAVIRENZ
     Indication: HIV INFECTION
     Dosage: 600 MILLIGRAM, DAILY
     Route: 064
     Dates: start: 20180301
  3. ALCOHOL. [Concomitant]
     Active Substance: ALCOHOL
     Indication: PRODUCT USED FOR UNKNOWN INDICATION
     Dosage: UNK
     Route: 065
  4. TENOFOVIR DISOPROXIL FUMARATE. [Suspect]
     Active Substance: TENOFOVIR DISOPROXIL FUMARATE
     Indication: HIV INFECTION
     Dosage: 300 MILLIGRAM, DAILY
     Route: 064
     Dates: start: 20180301
  5. FOLATE SODIUM [Concomitant]
     Active Substance: FOLATE SODIUM
     Indication: PRODUCT USED FOR UNKNOWN INDICATION
     Dosage: UNK
     Route: 065
  6. SULFAMETHOXAZOL;TRIMETOPRIM [Concomitant]
     Indication: PRODUCT USED FOR UNKNOWN INDICATION
     Dosage: UNK
     Route: 065

REACTIONS (3)
  - Birth mark [Unknown]
  - Umbilical hernia [Unknown]
  - Foetal exposure during pregnancy [Unknown]
